FAERS Safety Report 9524112 (Version 1)
Quarter: 2013Q3

REPORT INFORMATION
  Report Type: Spontaneous
  Country: None (occurrence: None)
  Receive Date: 20130912
  Receipt Date: 20130912
  Transmission Date: 20140515
  Serious: Yes (Hospitalization, Other)
  Sender: FDA-Public Use
  Company Number: DAV-AE-PYR-13-05

PATIENT
  Age: 45 Year
  Sex: Male

DRUGS (5)
  1. PYRAZINAMIDE [Suspect]
     Indication: PULMONARY TUBERCULOSIS
  2. ISONIAZID [Concomitant]
  3. OFLOXACIN [Concomitant]
  4. RIFAMPIN [Concomitant]
  5. ETHAMBUTOL [Concomitant]

REACTIONS (2)
  - Immune reconstitution inflammatory syndrome [None]
  - Diffuse large B-cell lymphoma recurrent [None]
